FAERS Safety Report 21370781 (Version 1)
Quarter: 2022Q3

REPORT INFORMATION
  Report Type: Spontaneous
  Country: IT (occurrence: None)
  Receive Date: 20220923
  Receipt Date: 20220923
  Transmission Date: 20221026
  Serious: Yes (Death)
  Sender: FDA-Public Use
  Company Number: None

PATIENT
  Age: 80 Year
  Sex: Male
  Weight: 79 kg

DRUGS (2)
  1. TECENTRIQ [Suspect]
     Active Substance: ATEZOLIZUMAB
     Indication: Hepatic cancer metastatic
     Route: 065
     Dates: start: 20220817, end: 20220817
  2. BEVACIZUMAB [Suspect]
     Active Substance: BEVACIZUMAB
     Indication: Product used for unknown indication
     Dosage: MOST RECENT DOSE: 17/AUG/2022
     Route: 065
     Dates: start: 20220817

REACTIONS (5)
  - Pyrexia [Fatal]
  - Seizure [Fatal]
  - Hemiparesis [Fatal]
  - Confusional state [Fatal]
  - Coma [Fatal]

NARRATIVE: CASE EVENT DATE: 20220829
